FAERS Safety Report 7517536-7 (Version None)
Quarter: 2011Q2

REPORT INFORMATION
  Report Type: 
  Country: None (occurrence: None)
  Receive Date: 20110601
  Receipt Date: 20110518
  Transmission Date: 20111010
  Serious: Yes (Death, Hospitalization, Other)
  Sender: FDA-Public Use
  Company Number: US-ELI_LILLY_AND_COMPANY-US201012001632

PATIENT
  Sex: Female
  Weight: 52.608 kg

DRUGS (31)
  1. ADDERALL 10 [Concomitant]
  2. PROPRANOLOL [Concomitant]
  3. OXYCONTIN [Concomitant]
     Dosage: 20 MG, 3/D
  4. REMICADE [Concomitant]
     Dosage: UNK, EVERY 8 WEEKS
  5. ACYCLOVIR [Concomitant]
  6. GABAPENTIN [Concomitant]
  7. OXYCONTIN [Concomitant]
     Dosage: UNK, 2/D
  8. FOLIC ACID [Concomitant]
  9. METHOTREXATE [Concomitant]
  10. RELAFEN [Concomitant]
  11. FUROSEMIDE [Concomitant]
  12. POTASSIUM CHLORIDE [Concomitant]
  13. SIMVASTATIN [Concomitant]
  14. ZOLPIDEM [Concomitant]
  15. LEXAPRO [Concomitant]
  16. OXYCONTIN [Concomitant]
     Dosage: 40 MG, 3/D
  17. PREDNISONE [Concomitant]
  18. FORTEO [Suspect]
     Indication: OSTEOPOROSIS
     Dosage: 20 UG, DAILY (1/D)
     Route: 058
  19. NITROFURANTOIN [Concomitant]
  20. LOTEMAX [Concomitant]
  21. RESTASIS [Concomitant]
  22. LAMOTRIGINE [Concomitant]
  23. DIAZEPAM [Concomitant]
  24. PILOCARPINE [Concomitant]
  25. ASPIRIN [Concomitant]
     Dosage: 81 MG, UNK
  26. METAMUCIL-2 [Concomitant]
  27. OMEPRAZOLE [Concomitant]
  28. BENICAR [Concomitant]
  29. POLYETHYLENE GLYCOL [Concomitant]
  30. FORTEO [Suspect]
     Dosage: 20 UG, DAILY (1/D)
     Route: 058
     Dates: end: 20110103
  31. SPIRIVA [Concomitant]

REACTIONS (9)
  - TRANSIENT ISCHAEMIC ATTACK [None]
  - DELIRIUM [None]
  - PAIN [None]
  - ANXIETY [None]
  - DELUSION [None]
  - EXPIRED DRUG ADMINISTERED [None]
  - RHEUMATOID ARTHRITIS [None]
  - PELVIC FRACTURE [None]
  - COGNITIVE DISORDER [None]
